FAERS Safety Report 24953373 (Version 1)
Quarter: 2025Q1

REPORT INFORMATION
  Report Type: Spontaneous
  Country: IT (occurrence: IT)
  Receive Date: 20250211
  Receipt Date: 20250211
  Transmission Date: 20250408
  Serious: Yes (Life-Threatening, Hospitalization, Other)
  Sender: COSETTE PHARMACEUTICALS INC
  Company Number: None

PATIENT
  Age: 44 Year
  Sex: Female
  Weight: 69 kg

DRUGS (13)
  1. AMBIEN [Suspect]
     Active Substance: ZOLPIDEM TARTRATE
     Indication: Insomnia
     Dosage: 10 MG, QD (ONE TABLET IN THE EVENING)
     Route: 048
     Dates: start: 20230314, end: 20240221
  2. DIAZEPAM [Suspect]
     Active Substance: DIAZEPAM
     Indication: Insomnia
     Route: 048
     Dates: start: 20240221, end: 20240916
  3. DIAZEPAM [Suspect]
     Active Substance: DIAZEPAM
     Indication: Anxiety
  4. DELORAZEPAM [Suspect]
     Active Substance: DELORAZEPAM
     Indication: Anxiety
     Dosage: 2 MG, TID
     Route: 048
     Dates: start: 20230314, end: 20240221
  5. PREGABALIN [Suspect]
     Active Substance: PREGABALIN
     Indication: Anxiety
     Route: 048
     Dates: start: 20240809, end: 20240916
  6. FLURAZEPAM [Suspect]
     Active Substance: FLURAZEPAM HYDROCHLORIDE
     Indication: Initial insomnia
     Route: 048
     Dates: start: 202303, end: 20240221
  7. TIAPRIDE HYDROCHLORIDE [Suspect]
     Active Substance: TIAPRIDE HYDROCHLORIDE
     Indication: Alcohol withdrawal syndrome
     Dosage: 50 MG, (HALF A TABLET TID)
     Route: 048
     Dates: start: 20240130, end: 20240916
  8. TRAZODONE HYDROCHLORIDE [Suspect]
     Active Substance: TRAZODONE HYDROCHLORIDE
     Indication: Depression
     Route: 048
     Dates: start: 20240809, end: 20240916
  9. QUETIAPINE [Suspect]
     Active Substance: QUETIAPINE
     Indication: Product used for unknown indication
     Route: 065
     Dates: start: 20230320, end: 20240221
  10. QUETIAPINE [Suspect]
     Active Substance: QUETIAPINE
     Route: 065
     Dates: start: 20240221, end: 20240809
  11. VALPROATE SODIUM [Suspect]
     Active Substance: VALPROATE SODIUM
     Indication: Product used for unknown indication
     Dosage: 300 MG (1 TABLET TWICE DAILY)
     Route: 065
     Dates: start: 20230314, end: 20240221
  12. VALPROATE SODIUM [Suspect]
     Active Substance: VALPROATE SODIUM
     Route: 065
     Dates: start: 20240221
  13. LITHIUM SULFATE [Suspect]
     Active Substance: LITHIUM SULFATE
     Indication: Product used for unknown indication
     Route: 065
     Dates: start: 20240221

REACTIONS (15)
  - Alcoholism [Recovered/Resolved]
  - Intentional self-injury [Recovering/Resolving]
  - Antisocial behaviour [Recovering/Resolving]
  - Insomnia [Not Recovered/Not Resolved]
  - Feeling jittery [Recovering/Resolving]
  - Weight increased [Recovering/Resolving]
  - Balance disorder [Recovered/Resolved]
  - Gastrooesophageal reflux disease [Not Recovered/Not Resolved]
  - Menstruation irregular [Not Recovered/Not Resolved]
  - Polyuria [Recovering/Resolving]
  - Hypotension [Recovering/Resolving]
  - Headache [Recovering/Resolving]
  - Disturbance in attention [Not Recovered/Not Resolved]
  - Tremor [Not Recovered/Not Resolved]
  - Vision blurred [Not Recovered/Not Resolved]

NARRATIVE: CASE EVENT DATE: 20230101
